FAERS Safety Report 6521034-7 (Version None)
Quarter: 2009Q4

REPORT INFORMATION
  Report Type: 
  Country: None (occurrence: None)
  Receive Date: 20091229
  Receipt Date: 20091221
  Transmission Date: 20100525
  Serious: Yes (Hospitalization, Other)
  Sender: FDA-Public Use
  Company Number: JP-ABBOTT-09P-087-0597529-00

PATIENT
  Sex: Female

DRUGS (9)
  1. HUMIRA [Suspect]
     Indication: RHEUMATOID ARTHRITIS
     Route: 058
     Dates: start: 20090518, end: 20090824
  2. TACROLIMUS [Suspect]
     Indication: RHEUMATOID ARTHRITIS
     Route: 048
     Dates: end: 20090615
  3. SODIUM GLUCONATE HYDRATE/L-GLUTAMINE [Suspect]
     Indication: DRUG USE FOR UNKNOWN INDICATION
     Route: 048
  4. PREDNISOLONE [Suspect]
     Indication: DRUG USE FOR UNKNOWN INDICATION
     Route: 048
  5. PREDNISOLONE [Concomitant]
     Indication: RHEUMATOID ARTHRITIS
     Route: 048
     Dates: end: 20090622
  6. PREDNISOLONE [Concomitant]
     Route: 048
     Dates: start: 20090623
  7. AZULENE [Concomitant]
     Indication: DRUG USE FOR UNKNOWN INDICATION
     Route: 048
  8. SAMLETEROL XINAFOATE/FLUTICASONE PROPIONATE [Concomitant]
     Indication: DRUG USE FOR UNKNOWN INDICATION
  9. SPHERICAL CARBONACEOUS ABSORBENT [Concomitant]
     Indication: DRUG USE FOR UNKNOWN INDICATION

REACTIONS (8)
  - ALPHA HAEMOLYTIC STREPTOCOCCAL INFECTION [None]
  - BRONCHITIS [None]
  - CANDIDIASIS [None]
  - HAEMATEMESIS [None]
  - HAEMOPTYSIS [None]
  - NEISSERIA INFECTION [None]
  - ORGANISING PNEUMONIA [None]
  - PSEUDOMONAS INFECTION [None]
